FAERS Safety Report 18686410 (Version 2)
Quarter: 2022Q3

REPORT INFORMATION
  Report Type: Spontaneous
  Country: US (occurrence: US)
  Receive Date: 20201230
  Receipt Date: 20220830
  Transmission Date: 20221027
  Serious: Yes (Other)
  Sender: FDA-Public Use
  Company Number: US-SAARTEMIS-SAC202012230460

PATIENT
  Age: 73 Year
  Sex: Female

DRUGS (7)
  1. ZANTAC [Suspect]
     Active Substance: RANITIDINE HYDROCHLORIDE
     Indication: Dyspepsia
     Dosage: 75 MG, QD
  2. ZANTAC [Suspect]
     Active Substance: RANITIDINE HYDROCHLORIDE
     Indication: Gastrooesophageal reflux disease
     Dosage: 150 MG, QD
  3. ANASTROZOLE [Concomitant]
     Active Substance: ANASTROZOLE
     Dates: start: 20150201, end: 20150601
  4. EXEMESTANE [Concomitant]
     Active Substance: EXEMESTANE
     Dates: start: 20150701, end: 20150724
  5. TAMOXIFEN [Concomitant]
     Active Substance: TAMOXIFEN
     Dates: start: 20150915, end: 20151231
  6. HYDROCORTISONE [Concomitant]
     Active Substance: HYDROCORTISONE
  7. PREDNISOLONE [Concomitant]
     Active Substance: PREDNISOLONE
     Indication: Pneumonitis
     Dosage: UNK

REACTIONS (21)
  - Breast cancer stage I [Unknown]
  - Stress [Unknown]
  - Anger [Unknown]
  - Joint swelling [Not Recovered/Not Resolved]
  - Arthralgia [Not Recovered/Not Resolved]
  - Dizziness [Unknown]
  - Muscle spasms [Unknown]
  - Fatigue [Unknown]
  - Asthenia [Unknown]
  - Hyperhidrosis [Unknown]
  - Vaginal discharge [Unknown]
  - Alopecia [Unknown]
  - Chest pain [Unknown]
  - Hypoaesthesia [Unknown]
  - Bone pain [Unknown]
  - Breast pain [Unknown]
  - Myalgia [Unknown]
  - Breast mass [Unknown]
  - Injection site mass [Unknown]
  - Dyspnoea [Unknown]
  - Pneumonitis [Unknown]

NARRATIVE: CASE EVENT DATE: 20141001
